FAERS Safety Report 13392951 (Version 1)
Quarter: 2017Q1

REPORT INFORMATION
  Report Type: Report from Study
  Country: IT (occurrence: IT)
  Receive Date: 20170331
  Receipt Date: 20170331
  Transmission Date: 20170429
  Serious: Yes (Hospitalization, Other)
  Sender: FDA-Public Use
  Company Number: IT-MYLANLABS-2017M1019233

PATIENT

DRUGS (1)
  1. QUETIAPINE. [Suspect]
     Active Substance: QUETIAPINE
     Indication: PRODUCT USED FOR UNKNOWN INDICATION
     Dosage: 1800 MG TOTAL
     Route: 048
     Dates: start: 20170301, end: 20170301

REACTIONS (3)
  - Overdose [Unknown]
  - Drug abuse [Unknown]
  - Depressed level of consciousness [Recovered/Resolved with Sequelae]

NARRATIVE: CASE EVENT DATE: 20170301
